FAERS Safety Report 21689343 (Version 1)
Quarter: 2022Q4

REPORT INFORMATION
  Report Type: Spontaneous
  Country: CA (occurrence: CA)
  Receive Date: 20221206
  Receipt Date: 20221206
  Transmission Date: 20230112
  Serious: Yes (Other)
  Sender: FDA-Public Use
  Company Number: CA-ANIPHARMA-2020-CA-001604

PATIENT
  Age: 72 Year
  Sex: Female

DRUGS (29)
  1. CANDESARTAN CILEXETIL [Suspect]
     Active Substance: CANDESARTAN CILEXETIL
     Indication: Product used for unknown indication
     Dosage: 20 MG UNK / 25 MG DAILY
     Route: 048
  2. NAPROXEN [Concomitant]
     Active Substance: NAPROXEN
     Dosage: 500 MG UNK
     Route: 048
  3. FLUTICASONE FUROATE [Concomitant]
     Active Substance: FLUTICASONE FUROATE
     Dosage: 27.5 UG QD
     Route: 045
  4. CLIMARA [Concomitant]
     Active Substance: ESTRADIOL
     Dosage: 1 DF WEEK
     Route: 065
  5. DULOXETINE [Suspect]
     Active Substance: DULOXETINE
     Route: 065
  6. EURO DOCUSATE C [Concomitant]
     Dosage: 2 DF BID
     Route: 048
  7. LANSOPRAZOLE [Concomitant]
     Active Substance: LANSOPRAZOLE
     Dosage: 30 MG UNK
     Route: 048
  8. LYRICA [Concomitant]
     Active Substance: PREGABALIN
     Dosage: 75 MG UNK / DOSE: 50 MG UNK / DOSE: 25 MG BID  / DOSE TEXT: 75 MG (AT BEDTIME PLUS 50 MG PER DAY) /
     Route: 048
     Dates: start: 2018, end: 2018
  9. NAPROXEN [Concomitant]
     Active Substance: NAPROXEN
     Dosage: 500 MG BID / DOSE: 1 DF BID
     Route: 048
  10. AMLODIPINE [Concomitant]
     Active Substance: AMLODIPINE BESYLATE
     Dosage: 5 MG QD / DOSE: UNK
     Route: 048
  11. ROSUVASTATIN [Concomitant]
     Active Substance: ROSUVASTATIN
     Dosage: DOSE: 5 MG QD / DOSE: 10MG QD / DOSE: 1 DF QD
     Route: 048
  12. SYNTHROID [Suspect]
     Active Substance: LEVOTHYROXINE SODIUM
     Dosage: .05 MG QD
     Route: 048
  13. TYLENOL [Suspect]
     Active Substance: ACETAMINOPHEN
     Route: 065
  14. .ALPHA.-TOCOPHEROL, D- [Concomitant]
     Active Substance: .ALPHA.-TOCOPHEROL, D-
     Dosage: 400 IU UNK
     Route: 065
     Dates: start: 201610
  15. EFFEXOR [Concomitant]
     Active Substance: VENLAFAXINE HYDROCHLORIDE
     Route: 065
  16. AMOXICILLIN\CLAVULANATE POTASSIUM [Concomitant]
     Active Substance: AMOXICILLIN\CLAVULANATE POTASSIUM
     Route: 065
  17. ASPIRIN [Concomitant]
     Active Substance: ASPIRIN
     Dosage: 80 MG QD
     Route: 048
  18. POLYETHYLENE GLYCOL 3350 [Concomitant]
     Active Substance: POLYETHYLENE GLYCOL 3350
     Dosage: 17 G BID
     Route: 048
  19. LYRICA [Concomitant]
     Active Substance: PREGABALIN
     Dosage: 75 MG UNK / DOSE: 50 MG UNK / DOSE: 25 MG BID / DOSE TEXT: 75 MG (AT BEDTIME PLUS 50 MG PER DAY) / D
     Route: 048
     Dates: start: 2018, end: 2018
  20. RIVA-CYCLOPRINE [Concomitant]
     Dosage: UNKNOWN DOSE EVERY ONE HOUR
     Route: 065
  21. POLYETHYLENE GLYCOLS [Concomitant]
     Active Substance: POLYETHYLENE GLYCOLS
     Route: 048
  22. AMLODIPINE BESYLATE [Concomitant]
     Active Substance: AMLODIPINE BESYLATE
     Route: 048
  23. ATENOLOL [Concomitant]
     Active Substance: ATENOLOL
     Dosage: 25 MG UNK / DOSE: 30 MG PRN
     Route: 048
  24. AMITRIPTYLINE HYDROCHLORIDE [Concomitant]
     Active Substance: AMITRIPTYLINE HYDROCHLORIDE
     Route: 048
  25. CYMBALTA [Concomitant]
     Active Substance: DULOXETINE HYDROCHLORIDE
     Route: 065
  26. ESTRADIOL\NORETHINDRONE ACETATE [Suspect]
     Active Substance: ESTRADIOL\NORETHINDRONE ACETATE
     Dosage: 1 DF Q2WK
     Route: 065
  27. SANDOSTATIN [Suspect]
     Active Substance: OCTREOTIDE ACETATE
     Dosage: 100 UG TID
     Route: 058
     Dates: start: 201710
  28. SANDOSTATIN LAR DEPOT [Suspect]
     Active Substance: OCTREOTIDE ACETATE
     Dosage: 30 MG MONTH
     Route: 030
     Dates: start: 20160707
  29. CANDESARTAN CILEXETIL\HYDROCHLOROTHIAZIDE [Concomitant]
     Active Substance: CANDESARTAN CILEXETIL\HYDROCHLOROTHIAZIDE
     Route: 048

REACTIONS (30)
  - Constipation [Not Recovered/Not Resolved]
  - Nausea [Not Recovered/Not Resolved]
  - Somnolence [Not Recovered/Not Resolved]
  - Back pain [Not Recovered/Not Resolved]
  - Pruritus [Not Recovered/Not Resolved]
  - Renal impairment [Not Recovered/Not Resolved]
  - Abdominal distension [Not Recovered/Not Resolved]
  - Abdominal pain [Not Recovered/Not Resolved]
  - Abdominal pain lower [Not Recovered/Not Resolved]
  - Acne [Not Recovered/Not Resolved]
  - Body temperature decreased [Not Recovered/Not Resolved]
  - Bursitis [Not Recovered/Not Resolved]
  - Contusion [Not Recovered/Not Resolved]
  - Hot flush [Not Recovered/Not Resolved]
  - Hypokinesia [Not Recovered/Not Resolved]
  - Musculoskeletal pain [Not Recovered/Not Resolved]
  - Productive cough [Not Recovered/Not Resolved]
  - Rhinorrhoea [Not Recovered/Not Resolved]
  - Sinusitis [Not Recovered/Not Resolved]
  - Blood potassium decreased [Not Recovered/Not Resolved]
  - Drug hypersensitivity [Not Recovered/Not Resolved]
  - Diarrhoea [Not Recovered/Not Resolved]
  - Gingival abscess [Not Recovered/Not Resolved]
  - Product administration error [Not Recovered/Not Resolved]
  - Dizziness [Not Recovered/Not Resolved]
  - Dyspnoea [Not Recovered/Not Resolved]
  - Erythema [Not Recovered/Not Resolved]
  - Fatigue [Not Recovered/Not Resolved]
  - Heart rate decreased [Not Recovered/Not Resolved]
  - Hypotension [Not Recovered/Not Resolved]

NARRATIVE: CASE EVENT DATE: 20090901
